FAERS Safety Report 9036090 (Version 1)
Quarter: 2013Q1

REPORT INFORMATION
  Report Type: Report from Study
  Country: US (occurrence: US)
  Receive Date: 20130129
  Receipt Date: 20130129
  Transmission Date: 20140127
  Serious: No
  Sender: FDA-Public Use
  Company Number: US-ABBOTT-12P-163-0920351-00

PATIENT
  Age: 43 Year
  Sex: Female

DRUGS (9)
  1. HUMIRA 40 MG/0.8 ML PEN [Suspect]
     Indication: CROHN^S DISEASE
     Route: 058
     Dates: start: 201103
  2. HUMIRA 40 MG/0.8 ML PEN [Suspect]
     Indication: UVEITIS
  3. AZATHIOPRINE [Concomitant]
     Indication: UVEITIS
  4. FOLIC ACID [Concomitant]
     Indication: CROHN^S DISEASE
  5. FLUOXETINE [Concomitant]
     Indication: CROHN^S DISEASE
  6. AMBIEN [Concomitant]
     Indication: INSOMNIA
  7. OMEPRAZOLE [Concomitant]
     Indication: CROHN^S DISEASE
  8. HYDROCHLOROTHIAZIDE [Concomitant]
     Indication: HYPERTENSION
  9. BABY ASPIRIN [Concomitant]
     Indication: PROPHYLAXIS

REACTIONS (8)
  - Chills [Not Recovered/Not Resolved]
  - Hyperhidrosis [Not Recovered/Not Resolved]
  - Fatigue [Not Recovered/Not Resolved]
  - Feeling abnormal [Not Recovered/Not Resolved]
  - Fatigue [Not Recovered/Not Resolved]
  - Feeling abnormal [Not Recovered/Not Resolved]
  - Pain [Not Recovered/Not Resolved]
  - Nausea [Not Recovered/Not Resolved]
